FAERS Safety Report 19081015 (Version 1)
Quarter: 2021Q1

REPORT INFORMATION
  Report Type: Other
  Country: RU (occurrence: RU)
  Receive Date: 20210331
  Receipt Date: 20210331
  Transmission Date: 20210420
  Serious: Yes (Hospitalization, Other)
  Sender: FDA-Public Use
  Company Number: RU-VALIDUS PHARMACEUTICALS LLC-RU-2021VAL000901

PATIENT
  Age: 47 Year
  Sex: Female

DRUGS (6)
  1. DEXAMETHASONE. [Concomitant]
     Active Substance: DEXAMETHASONE
     Indication: PRODUCT USED FOR UNKNOWN INDICATION
     Dosage: UNK
     Dates: start: 20190513, end: 20190514
  2. PENTOXIFYLLINE. [Suspect]
     Active Substance: PENTOXIFYLLINE
     Indication: BACK PAIN
     Dosage: 100 MG, UNK
     Route: 042
     Dates: start: 20190513, end: 20190514
  3. CYANOCOBALAMIN. [Suspect]
     Active Substance: CYANOCOBALAMIN
     Indication: BACK PAIN
     Dosage: 1000 ?G, UNK
     Route: 030
     Dates: start: 20190513, end: 20190514
  4. SIRDALUD [Suspect]
     Active Substance: TIZANIDINE
     Indication: MUSCLE TONE DISORDER
  5. SIRDALUD [Suspect]
     Active Substance: TIZANIDINE
     Indication: BACK PAIN
     Dosage: 4 MG, UNK
     Route: 048
     Dates: start: 20190513, end: 20190514
  6. NEUROX                             /07334302/ [Concomitant]
     Indication: PRODUCT USED FOR UNKNOWN INDICATION
     Dosage: UNK
     Dates: start: 20190513, end: 20190514

REACTIONS (4)
  - Pruritus [Recovered/Resolved]
  - Hyperaemia [Recovered/Resolved]
  - Off label use [Unknown]
  - Blood pressure decreased [Recovered/Resolved]

NARRATIVE: CASE EVENT DATE: 20190513
